FAERS Safety Report 18377906 (Version 2)
Quarter: 2020Q4

REPORT INFORMATION
  Report Type: Spontaneous
  Country: US (occurrence: US)
  Receive Date: 20201013
  Receipt Date: 20201103
  Transmission Date: 20210114
  Serious: Yes (Hospitalization, Other)
  Sender: FDA-Public Use
  Company Number: US-AMGEN-USASP2020163629

PATIENT
  Age: 84 Year
  Sex: Female
  Weight: 99.79 kg

DRUGS (2)
  1. XGEVA [Suspect]
     Active Substance: DENOSUMAB
     Indication: PRODUCT USED FOR UNKNOWN INDICATION
     Dosage: UNK, QMO
     Route: 065
  2. XALKORI [Suspect]
     Active Substance: CRIZOTINIB
     Indication: SMALL CELL LUNG CANCER METASTATIC
     Dosage: 250 MILLIGRAM, BID
     Route: 048

REACTIONS (5)
  - Bradycardia [Recovering/Resolving]
  - Lymphoedema [Unknown]
  - Arthralgia [Unknown]
  - Fatigue [Unknown]
  - Dizziness [Recovering/Resolving]

NARRATIVE: CASE EVENT DATE: 202008
